FAERS Safety Report 14505006 (Version 1)
Quarter: 2018Q1

REPORT INFORMATION
  Report Type: Spontaneous
  Country: US (occurrence: US)
  Receive Date: 20180208
  Receipt Date: 20180208
  Transmission Date: 20180509
  Serious: No
  Sender: FDA-Public Use
  Company Number: US-JNJFOC-20171235101

PATIENT
  Sex: Male
  Weight: 120 kg

DRUGS (2)
  1. IMBRUVICA [Suspect]
     Active Substance: IBRUTINIB
     Indication: CHRONIC LYMPHOCYTIC LEUKAEMIA
     Route: 048
     Dates: start: 20150102
  2. BENZYLPENICILLIN [Suspect]
     Active Substance: PENICILLIN G
     Indication: PRODUCT USED FOR UNKNOWN INDICATION
     Route: 065

REACTIONS (5)
  - Peripheral swelling [Recovered/Resolved]
  - Myalgia [Not Recovered/Not Resolved]
  - Drug hypersensitivity [Unknown]
  - Upper respiratory tract infection [Recovered/Resolved]
  - Blister [Recovered/Resolved]
